FAERS Safety Report 7905088-9 (Version None)
Quarter: 2011Q4

REPORT INFORMATION
  Report Type: 
  Country: None (occurrence: None)
  Receive Date: 20111109
  Receipt Date: 20111107
  Transmission Date: 20120403
  Serious: Yes (Hospitalization, Other)
  Sender: FDA-Public Use
  Company Number: PHHY2011BE097981

PATIENT
  Sex: Male

DRUGS (4)
  1. BUDESONIDE [Concomitant]
     Indication: CHRONIC OBSTRUCTIVE PULMONARY DISEASE
  2. AZATHIOPRINE [Concomitant]
     Indication: ANTIINFLAMMATORY THERAPY
     Dosage: 50 MG EVERY 2 DAYS
  3. ASAFLOW [Concomitant]
  4. ONBREZ [Suspect]
     Indication: CHRONIC OBSTRUCTIVE PULMONARY DISEASE
     Dosage: 1 DF, UNK
     Dates: start: 20111029

REACTIONS (7)
  - CHEST PAIN [None]
  - MALAISE [None]
  - ARTERIAL STENOSIS [None]
  - MYOCARDIAL INFARCTION [None]
  - TROPONIN INCREASED [None]
  - PALLOR [None]
  - CARDIAC ENZYMES INCREASED [None]
